FAERS Safety Report 9408804 (Version 4)
Quarter: 2014Q1

REPORT INFORMATION
  Report Type: Spontaneous
  Country: US (occurrence: US)
  Receive Date: 20130719
  Receipt Date: 20140226
  Transmission Date: 20141002
  Serious: No
  Sender: FDA-Public Use
  Company Number: US-009507513-1307USA009777

PATIENT
  Age: 61 Year
  Sex: Male
  Weight: 65.76 kg

DRUGS (8)
  1. VICTRELIS [Suspect]
     Indication: HEPATITIS C
     Dosage: 800 MG, Q8H(TAKE 4 CAPSULES BY MOUTH THREE TIMES A DAY TO BE STARTED ON WEEK 5)
     Route: 048
     Dates: start: 20130717
  2. REBETOL [Suspect]
     Indication: HEPATITIS C
     Dosage: TOTAL DAILY DOSE 1000 MG
     Route: 048
     Dates: start: 20130619
  3. PEGASYS [Suspect]
     Dosage: 180 MG, WEEKLY, PROCLICK
     Route: 058
     Dates: start: 20130619
  4. WELLBUTRIN [Concomitant]
     Dosage: UNK
     Route: 048
  5. CAFFEINE [Concomitant]
     Dosage: UNK
     Route: 048
  6. ANACIN [Concomitant]
     Dosage: UNK
  7. TYLENOL [Concomitant]
     Dosage: UNK
     Route: 048
  8. PROCRIT [Concomitant]
     Dosage: UNK

REACTIONS (12)
  - Pruritus [Recovered/Resolved]
  - Fatigue [Recovered/Resolved]
  - Dysgeusia [Recovered/Resolved]
  - Decreased appetite [Recovered/Resolved]
  - Weight decreased [Recovered/Resolved]
  - Injection site rash [Recovered/Resolved]
  - Depressive symptom [Recovered/Resolved]
  - Rash generalised [Recovered/Resolved]
  - Nausea [Recovered/Resolved]
  - Somnolence [Recovered/Resolved]
  - Nausea [Recovered/Resolved]
  - Rash pruritic [Recovered/Resolved]
